FAERS Safety Report 21452496 (Version 3)
Quarter: 2023Q2

REPORT INFORMATION
  Report Type: Other
  Country: JP (occurrence: JP)
  Receive Date: 20221013
  Receipt Date: 20230608
  Transmission Date: 20230722
  Serious: Yes (Other)
  Sender: FDA-Public Use
  Company Number: JP-CHUGAI-2022028981

PATIENT
  Age: 51 Year
  Sex: Female
  Weight: 53.9 kg

DRUGS (5)
  1. ATEZOLIZUMAB [Suspect]
     Active Substance: ATEZOLIZUMAB
     Indication: Large cell lung cancer
     Dosage: 1200 MILLIGRAM
     Route: 041
     Dates: start: 20210713, end: 20210804
  2. BEVACIZUMAB [Suspect]
     Active Substance: BEVACIZUMAB
     Indication: Large cell lung cancer
     Route: 041
     Dates: start: 20210713
  3. CARBOPLATIN [Concomitant]
     Active Substance: CARBOPLATIN
     Indication: Large cell lung cancer
     Dosage: 720 MILLIGRAM
     Route: 041
     Dates: start: 20210713
  4. PACLITAXEL [Concomitant]
     Active Substance: PACLITAXEL
     Indication: Large cell lung cancer
     Dosage: 320 MILLIGRAM
     Route: 041
     Dates: start: 20210713
  5. HYDROCORTONE FOSFAT [Concomitant]
     Dosage: 100 MILLIGRAM
     Route: 041

REACTIONS (7)
  - Vascular device infection [Recovered/Resolved]
  - Appendicitis [Recovered/Resolved]
  - Pain in extremity [Recovered/Resolved]
  - Decreased appetite [Recovered/Resolved]
  - Platelet count decreased [Recovered/Resolved]
  - Hypertension [Recovered/Resolved]
  - Silent thyroiditis [Not Recovered/Not Resolved]

NARRATIVE: CASE EVENT DATE: 20210714
